FAERS Safety Report 19956224 (Version 1)
Quarter: 2021Q4

REPORT INFORMATION
  Report Type: Other
  Country: US (occurrence: US)
  Receive Date: 20211014
  Receipt Date: 20211014
  Transmission Date: 20220303
  Serious: Yes (Hospitalization)
  Sender: FDA-Public Use
  Company Number: US-ROCHE-2933217

PATIENT
  Age: 79 Year
  Sex: Male

DRUGS (5)
  1. RITUXIMAB [Suspect]
     Active Substance: RITUXIMAB
     Indication: Lymphoma
     Route: 065
  2. DEXAMETHASONE [Concomitant]
     Active Substance: DEXAMETHASONE
  3. IVERMECTIN [Concomitant]
     Active Substance: IVERMECTIN
  4. REMDESIVIR [Concomitant]
     Active Substance: REMDESIVIR
  5. BARICITINIB [Concomitant]
     Active Substance: BARICITINIB

REACTIONS (1)
  - COVID-19 pneumonia [Unknown]
